FAERS Safety Report 22029491 (Version 8)
Quarter: 2024Q1

REPORT INFORMATION
  Report Type: Spontaneous
  Country: US (occurrence: US)
  Receive Date: 20230223
  Receipt Date: 20240105
  Transmission Date: 20240409
  Serious: No
  Sender: FDA-Public Use
  Company Number: US-PFIZER INC-PV202300033704

PATIENT
  Age: 67 Year
  Sex: Female

DRUGS (2)
  1. IBRANCE [Suspect]
     Active Substance: PALBOCICLIB
     Indication: Breast cancer female
     Dosage: 1 TABLET BY MOUTH DAILY FOR 21 DAYS ON, THEN 7 DAYS OFF
     Route: 048
     Dates: start: 20221209
  2. PRENATAL [ASCORBIC ACID;BETACAROTENE;CALCIUM CARBONATE;COLECALCIFEROL; [Concomitant]
     Dosage: UNK

REACTIONS (5)
  - Headache [Unknown]
  - Alopecia [Not Recovered/Not Resolved]
  - Nail disorder [Unknown]
  - COVID-19 [Recovered/Resolved]
  - Dry skin [Not Recovered/Not Resolved]
